FAERS Safety Report 25575679 (Version 2)
Quarter: 2025Q3

REPORT INFORMATION
  Report Type: Spontaneous
  Country: EU (occurrence: EU)
  Receive Date: 20250718
  Receipt Date: 20250728
  Transmission Date: 20251020
  Serious: Yes (Hospitalization, Other)
  Sender: SANOFI AVENTIS
  Company Number: None

PATIENT
  Age: 56 Year
  Sex: Male
  Weight: 138 kg

DRUGS (24)
  1. PREDNISONE [Suspect]
     Active Substance: PREDNISONE
     Indication: Retinal detachment
     Dosage: 40 MG, QD
     Route: 048
     Dates: start: 20250613, end: 20250618
  2. PREDNISONE [Suspect]
     Active Substance: PREDNISONE
     Dosage: 20 MG, QD
     Route: 048
     Dates: start: 20250619, end: 20250620
  3. DIAMOX SEQUELS [Suspect]
     Active Substance: ACETAZOLAMIDE
     Dosage: 750 MG, QD
     Route: 048
     Dates: start: 20250619, end: 20250628
  4. DIAMOX SEQUELS [Suspect]
     Active Substance: ACETAZOLAMIDE
     Dosage: 750 MG, QD
     Route: 048
     Dates: start: 20250625, end: 20250628
  5. DIAMOX SEQUELS [Suspect]
     Active Substance: ACETAZOLAMIDE
     Dosage: 1500 MG, QD
     Route: 048
     Dates: start: 20250621
  6. DORZOLAMIDE HYDROCHLORIDE [Suspect]
     Active Substance: DORZOLAMIDE HYDROCHLORIDE
     Indication: Retinal detachment
     Dosage: 2.000DROP (1/12 MILLILITRE) QD ; 1-0-1
     Route: 031
     Dates: start: 20250620, end: 20250622
  7. TIMOLOL MALEATE [Suspect]
     Active Substance: TIMOLOL MALEATE
     Indication: Retinal detachment
     Dosage: 2.000DROP (1/12 MILLILITRE) QD; GEL OPTHT
     Route: 031
     Dates: start: 20250620, end: 20250625
  8. BRIMONIDINE TARTRATE [Suspect]
     Active Substance: BRIMONIDINE TARTRATE
     Indication: Retinal detachment
     Dosage: 3 DROP, QD
     Route: 047
     Dates: start: 20250620, end: 20250620
  9. DEXAMETHASONE SODIUM PHOSPHATE [Suspect]
     Active Substance: DEXAMETHASONE SODIUM PHOSPHATE
     Indication: Retinal detachment
     Dosage: 1GTTX4/D FROM 21/06 AT 6.30AM; 3.000DROP (1/12 MILLILITRE) QD
     Route: 047
     Dates: start: 20250621
  10. LOPERAMIDE [Suspect]
     Active Substance: LOPERAMIDE
     Indication: Prophylaxis
     Dosage: 2 MG, QD
     Route: 048
  11. REPAGLINIDE [Suspect]
     Active Substance: REPAGLINIDE
     Indication: Insulin-requiring type 2 diabetes mellitus
     Dosage: 9 MG, QD
     Route: 048
     Dates: end: 20250626
  12. INSULIN GLARGINE [Suspect]
     Active Substance: INSULIN GLARGINE
     Indication: Insulin-requiring type 2 diabetes mellitus
     Dosage: 160 IU, QD
     Route: 058
  13. INSULIN GLARGINE [Suspect]
     Active Substance: INSULIN GLARGINE
  14. SILDENAFIL CITRATE [Suspect]
     Active Substance: SILDENAFIL CITRATE
     Indication: Product used for unknown indication
     Route: 058
     Dates: end: 202506
  15. ATORVASTATIN [Suspect]
     Active Substance: ATORVASTATIN
     Indication: Dyslipidaemia
     Dosage: 10 MG, QD
     Route: 048
  16. ACETAMINOPHEN [Suspect]
     Active Substance: ACETAMINOPHEN
     Indication: Pain
     Route: 048
     Dates: end: 202506
  17. ACUPAN [Suspect]
     Active Substance: NEFOPAM HYDROCHLORIDE
     Indication: Pain
     Dosage: 3 DF, QD; 1-1-1
     Route: 048
     Dates: start: 20250620, end: 20250622
  18. TROPICAMIDE [Suspect]
     Active Substance: TROPICAMIDE
     Indication: Retinal detachment
     Dosage: 1.000DROP (1/12 MILLILITRE) QD; 0-0-0-1
     Route: 031
     Dates: start: 20250621, end: 20250622
  19. HUMALOG KWIKPEN [Suspect]
     Active Substance: INSULIN LISPRO
     Indication: Insulin-requiring type 2 diabetes mellitus
     Route: 058
     Dates: start: 20250620
  20. MANNITOL [Suspect]
     Active Substance: MANNITOL
     Indication: Product used for unknown indication
     Route: 042
     Dates: start: 20250620, end: 20250620
  21. POLYETHYLENE GLYCOL 4000 [Suspect]
     Active Substance: POLYETHYLENE GLYCOL 4000
     Indication: Constipation
     Route: 048
     Dates: start: 20250620
  22. METFORMIN PAMOATE [Suspect]
     Active Substance: METFORMIN PAMOATE
     Indication: Insulin-requiring type 2 diabetes mellitus
     Dosage: 2 DF, QD
     Route: 048
  23. OZEMPIC [Suspect]
     Active Substance: SEMAGLUTIDE
     Indication: Insulin-requiring type 2 diabetes mellitus
     Dosage: 1 DF, QW
     Route: 058
     Dates: end: 202506
  24. ATROPINE [Suspect]
     Active Substance: ATROPINE
     Dosage: 2 DF, QD; 1-0-1
     Dates: start: 20250621, end: 20250702

REACTIONS (4)
  - Ischaemic stroke [Recovered/Resolved]
  - Pneumothorax spontaneous [Unknown]
  - Hyperhomocysteinaemia [Unknown]
  - Off label use [Recovered/Resolved]

NARRATIVE: CASE EVENT DATE: 20250613
